FAERS Safety Report 5326893-1 (Version None)
Quarter: 2007Q2

REPORT INFORMATION
  Report Type: 
  Country: None (occurrence: None)
  Receive Date: 20070511
  Receipt Date: 20070424
  Transmission Date: 20071010
  Serious: Yes (Other)
  Sender: FDA-Public Use
  Company Number: 2007VX000980

PATIENT
  Age: 64 Year
  Sex: Male

DRUGS (14)
  1. PERMAX [Suspect]
     Indication: PARKINSON'S DISEASE
     Dosage: SEE IMAGE
     Route: 048
     Dates: start: 20070303, end: 20070305
  2. PERMAX [Suspect]
     Indication: PARKINSON'S DISEASE
     Dosage: SEE IMAGE
     Route: 048
     Dates: start: 20070306, end: 20070308
  3. PERMAX [Suspect]
     Indication: PARKINSON'S DISEASE
     Dosage: SEE IMAGE
     Route: 048
     Dates: start: 20070309, end: 20070312
  4. ACINON [Concomitant]
  5. NEO DOPASTON [Concomitant]
  6. THYRADIN [Concomitant]
  7. ZANTAC [Concomitant]
  8. SERMION [Concomitant]
  9. GASCON [Concomitant]
  10. GRAMALIL [Concomitant]
  11. PURSENNID [Concomitant]
  12. CELESTONE [Concomitant]
  13. ALLEGRA [Concomitant]
  14. MUCOSOLVAN [Concomitant]

REACTIONS (1)
  - SINUS BRADYCARDIA [None]
